FAERS Safety Report 10018305 (Version 1)
Quarter: 2014Q1

REPORT INFORMATION
  Report Type: Spontaneous
  Country: US (occurrence: US)
  Receive Date: 20140318
  Receipt Date: 20140318
  Transmission Date: 20141002
  Serious: Yes (Hospitalization)
  Sender: FDA-Public Use
  Company Number: US-BRISTOL-MYERS SQUIBB COMPANY-19943703

PATIENT
  Age: 63 Year
  Sex: Male

DRUGS (2)
  1. ERBITUX [Suspect]
     Dates: start: 20131218, end: 20131218
  2. BENADRYL [Concomitant]
     Indication: PREMEDICATION
     Dosage: INFUSION
     Dates: start: 20131218

REACTIONS (1)
  - Anaphylactic shock [Unknown]
